FAERS Safety Report 5722353-4 (Version None)
Quarter: 2008Q2

REPORT INFORMATION
  Report Type: 
  Country: None (occurrence: None)
  Receive Date: 20080429
  Receipt Date: 20070821
  Transmission Date: 20081010
  Serious: No
  Sender: FDA-Public Use
  Company Number: US-ASTRAZENECA-2007UW18187

PATIENT
  Age: 58 Year
  Sex: Female
  Weight: 81.2 kg

DRUGS (5)
  1. NEXIUM [Suspect]
     Indication: HIATUS HERNIA
     Route: 048
     Dates: start: 20070719, end: 20070722
  2. NEXIUM [Suspect]
     Indication: GALLBLADDER DISORDER
     Route: 048
     Dates: start: 20070719, end: 20070722
  3. LABETALOL HCL [Concomitant]
  4. THYROID TAB [Concomitant]
  5. OMACOR [Concomitant]

REACTIONS (10)
  - ARTHRALGIA [None]
  - FIBROMYALGIA [None]
  - ILL-DEFINED DISORDER [None]
  - MUSCULOSKELETAL PAIN [None]
  - MUSCULOSKELETAL STIFFNESS [None]
  - OEDEMA PERIPHERAL [None]
  - PETECHIAE [None]
  - RASH [None]
  - SKIN EXFOLIATION [None]
  - URTICARIA [None]
